FAERS Safety Report 20505647 (Version 3)
Quarter: 2023Q1

REPORT INFORMATION
  Report Type: Other
  Country: IN (occurrence: None)
  Receive Date: 20220223
  Receipt Date: 20230221
  Transmission Date: 20230417
  Serious: Yes (Other)
  Sender: FDA-Public Use
  Company Number: IN-ROCHE-2716983

PATIENT
  Age: 63 Year
  Sex: Female

DRUGS (1)
  1. KADCYLA [Suspect]
     Active Substance: ADO-TRASTUZUMAB EMTANSINE
     Indication: Breast cancer metastatic
     Dosage: FORMULATION: INJECTION
     Route: 042
     Dates: start: 20200701

REACTIONS (5)
  - COVID-19 [Recovered/Resolved]
  - Platelet count decreased [Recovered/Resolved]
  - Ill-defined disorder [Unknown]
  - Impaired healing [Recovering/Resolving]
  - Ankle fracture [Unknown]

NARRATIVE: CASE EVENT DATE: 20200701
